FAERS Safety Report 10922581 (Version 2)
Quarter: 2015Q2

REPORT INFORMATION
  Report Type: Report from Study
  Country: US (occurrence: US)
  Receive Date: 20150317
  Receipt Date: 20150624
  Transmission Date: 20150821
  Serious: Yes (Hospitalization)
  Sender: FDA-Public Use
  Company Number: US-BAYER-2015-002032

PATIENT
  Age: 56 Year
  Sex: Female

DRUGS (3)
  1. NEXAVAR [Suspect]
     Active Substance: SORAFENIB
     Indication: HEPATIC CANCER
     Dosage: 200 MG, BID
     Route: 048
     Dates: start: 20141229
  2. ALEVE [Suspect]
     Active Substance: NAPROXEN SODIUM
  3. NEXAVAR [Suspect]
     Active Substance: SORAFENIB
     Indication: HEPATIC CANCER
     Dosage: 400 MG, BID
     Route: 048

REACTIONS (7)
  - Diarrhoea [Not Recovered/Not Resolved]
  - Headache [None]
  - Pain in extremity [None]
  - Gastric haemorrhage [None]
  - Tongue blistering [None]
  - Pain in extremity [Not Recovered/Not Resolved]
  - Blister [None]

NARRATIVE: CASE EVENT DATE: 20141229
